FAERS Safety Report 19470605 (Version 1)
Quarter: 2021Q2

REPORT INFORMATION
  Report Type: Spontaneous
  Country: HR (occurrence: HR)
  Receive Date: 20210629
  Receipt Date: 20210629
  Transmission Date: 20210717
  Serious: Yes (Life-Threatening, Hospitalization, Disabling, Other)
  Sender: FDA-Public Use
  Company Number: HR-SA-2021SA211098

PATIENT
  Age: 69 Year
  Sex: Male
  Weight: 90 kg

DRUGS (10)
  1. ROCALTROL [Concomitant]
     Active Substance: CALCITRIOL
     Dosage: UNK
     Route: 048
  2. ATORIS [Concomitant]
     Active Substance: ATORVASTATIN CALCIUM
     Dosage: UNK
     Route: 048
  3. MODERNA COVID?19 VACCINE [Suspect]
     Active Substance: CX-024414
     Dosage: 0.5 ML, QD
     Route: 030
     Dates: start: 20210318, end: 20210318
  4. PREDUCTAL MR [Concomitant]
     Active Substance: TRIMETAZIDINE DIHYDROCHLORIDE
     Dosage: 35 MG, UNK
     Route: 065
  5. ARES [RABEPRAZOLE SODIUM] [Concomitant]
     Dosage: UNK ()
     Route: 048
  6. ZOFECARD [Concomitant]
     Dosage: UNK
     Route: 048
  7. MODERNA COVID?19 VACCINE [Suspect]
     Active Substance: CX-024414
     Indication: COVID-19 IMMUNISATION
     Dosage: 0.5 ML, QD
     Route: 030
     Dates: start: 20210216, end: 20210216
  8. FRAGMIN [Concomitant]
     Active Substance: DALTEPARIN SODIUM
     Dosage: UNK
     Route: 065
  9. BISOPROLOL [Concomitant]
     Active Substance: BISOPROLOL
     Dosage: 2.5 MG, UNK
     Route: 065
  10. INSULIN GLARGINE [Suspect]
     Active Substance: INSULIN GLARGINE
     Dosage: 10 IU, UNK
     Route: 065

REACTIONS (2)
  - Cardio-respiratory arrest [Recovered/Resolved with Sequelae]
  - Resuscitation [Recovered/Resolved with Sequelae]
